FAERS Safety Report 8432449-4 (Version None)
Quarter: 2012Q2

REPORT INFORMATION
  Report Type: 
  Country: None (occurrence: None)
  Receive Date: 20120613
  Receipt Date: 20120612
  Transmission Date: 20120825
  Serious: Yes (Other)
  Sender: FDA-Public Use
  Company Number: CN-JNJFOC-20120413446

PATIENT
  Sex: Male
  Weight: 51 kg

DRUGS (1)
  1. PALIPERIDONE [Suspect]
     Indication: SCHIZOPHRENIA
     Route: 048
     Dates: start: 20110707, end: 20110708

REACTIONS (2)
  - PALPITATIONS [None]
  - DYSPNOEA [None]
